FAERS Safety Report 11574285 (Version 1)
Quarter: 2015Q3

REPORT INFORMATION
  Report Type: Spontaneous
  Country: US (occurrence: None)
  Receive Date: 20150928
  Receipt Date: 20150928
  Transmission Date: 20151125
  Serious: Yes (Life-Threatening, Hospitalization, Disabling)
  Sender: FDA-Public Use
  Company Number: None

PATIENT
  Age: 63 Year
  Sex: Female
  Weight: 65.77 kg

DRUGS (1)
  1. KENALOG [Suspect]
     Active Substance: TRIAMCINOLONE ACETONIDE
     Indication: JOINT INJURY
     Dosage: 2 SHOTS
     Route: 030
     Dates: start: 20150406, end: 20150415

REACTIONS (2)
  - Quality of life decreased [None]
  - Adverse drug reaction [None]

NARRATIVE: CASE EVENT DATE: 20150406
